FAERS Safety Report 7234976-4 (Version None)
Quarter: 2011Q1

REPORT INFORMATION
  Report Type: 
  Country: None (occurrence: None)
  Receive Date: 20110114
  Receipt Date: 20110114
  Transmission Date: 20110831
  Serious: Yes (Other)
  Sender: FDA-Public Use
  Company Number: None

PATIENT
  Age: 65 Year
  Sex: Female
  Weight: 69.8539 kg

DRUGS (1)
  1. BONIVA [Suspect]
     Indication: BONE DISORDER
     Dosage: 100 1 Q MONTH PO
     Route: 048
     Dates: start: 20100516, end: 20100617

REACTIONS (9)
  - MYALGIA [None]
  - PAIN IN EXTREMITY [None]
  - CARDIAC DISORDER [None]
  - CHEST PAIN [None]
  - ARTHRALGIA [None]
  - MUSCULOSKELETAL PAIN [None]
  - INSOMNIA [None]
  - VISUAL IMPAIRMENT [None]
  - PAIN [None]
